FAERS Safety Report 10891579 (Version 2)
Quarter: 2015Q2

REPORT INFORMATION
  Report Type: Report from Study
  Country: NL (occurrence: NL)
  Receive Date: 20150306
  Receipt Date: 20150421
  Transmission Date: 20150821
  Serious: Yes (Other)
  Sender: FDA-Public Use
  Company Number: NL-ROCHE-1547515

PATIENT

DRUGS (9)
  1. RITUXIMAB [Suspect]
     Active Substance: RITUXIMAB
     Indication: OCULAR LYMPHOMA
     Route: 042
  2. RITUXIMAB [Suspect]
     Active Substance: RITUXIMAB
     Indication: OCULAR LYMPHOMA
     Route: 050
  3. ONCOVIN [Suspect]
     Active Substance: VINCRISTINE SULFATE
     Indication: OCULAR LYMPHOMA
     Route: 042
  4. HYDROXYDAUNORUBICIN [Suspect]
     Active Substance: DOXORUBICIN
     Indication: OCULAR LYMPHOMA
     Route: 042
  5. METHOTREXATE [Suspect]
     Active Substance: METHOTREXATE
     Indication: OCULAR LYMPHOMA
     Route: 050
  6. METHOTREXATE [Suspect]
     Active Substance: METHOTREXATE
     Route: 042
  7. PREDNISONE. [Suspect]
     Active Substance: PREDNISONE
     Indication: OCULAR LYMPHOMA
     Route: 042
  8. CYCLOPHOSPHAMIDE. [Suspect]
     Active Substance: CYCLOPHOSPHAMIDE
     Indication: OCULAR LYMPHOMA
     Route: 042
  9. CYTARABINE. [Suspect]
     Active Substance: CYTARABINE
     Indication: OCULAR LYMPHOMA
     Route: 042

REACTIONS (7)
  - Nausea [Unknown]
  - Thrombocytopenia [Unknown]
  - Acute kidney injury [Unknown]
  - Sepsis [Unknown]
  - Anaemia [Unknown]
  - Intraocular pressure increased [Unknown]
  - Pyrexia [Unknown]
